FAERS Safety Report 8683188 (Version 2)
Quarter: 2013Q1

REPORT INFORMATION
  Report Type: Spontaneous
  Country: US (occurrence: US)
  Receive Date: 20120726
  Receipt Date: 20130124
  Transmission Date: 20140127
  Serious: No
  Sender: FDA-Public Use
  Company Number: US-BIOGENIDEC-2008BI034861

PATIENT
  Age: 53 Year
  Sex: Female

DRUGS (2)
  1. TYSABRI [Suspect]
     Indication: MULTIPLE SCLEROSIS
     Route: 042
     Dates: start: 20080904
  2. FLU SHOT [Concomitant]
     Indication: ANTIVIRAL PROPHYLAXIS
     Dates: start: 2012, end: 2012

REACTIONS (12)
  - Sensation of heaviness [Unknown]
  - Fall [Recovered/Resolved]
  - Joint swelling [Recovered/Resolved]
  - Mobility decreased [Recovered/Resolved]
  - Thrombosis [Unknown]
  - Paraesthesia [Unknown]
  - Pain in extremity [Not Recovered/Not Resolved]
  - Oral herpes [Unknown]
  - Urinary tract infection [Not Recovered/Not Resolved]
  - Headache [Recovered/Resolved]
  - Arthralgia [Not Recovered/Not Resolved]
  - Influenza [Not Recovered/Not Resolved]
